FAERS Safety Report 19920029 (Version 3)
Quarter: 2022Q4

REPORT INFORMATION
  Report Type: Spontaneous
  Country: US (occurrence: US)
  Receive Date: 20211005
  Receipt Date: 20221011
  Transmission Date: 20230113
  Serious: No
  Sender: FDA-Public Use
  Company Number: US-PFIZER INC-2021659765

PATIENT
  Age: 75 Year
  Sex: Female

DRUGS (2)
  1. IBRANCE [Suspect]
     Active Substance: PALBOCICLIB
     Dosage: 125 MG
  2. IBRANCE [Suspect]
     Active Substance: PALBOCICLIB
     Dosage: 100 MG
     Dates: start: 20210503

REACTIONS (7)
  - Memory impairment [Unknown]
  - Feeling abnormal [Unknown]
  - Mental disorder [Unknown]
  - White blood cell count decreased [Unknown]
  - Headache [Unknown]
  - Bone disorder [Unknown]
  - Diarrhoea [Unknown]
